FAERS Safety Report 6539662-1 (Version None)
Quarter: 2010Q1

REPORT INFORMATION
  Report Type: 
  Country: None (occurrence: None)
  Receive Date: 20100115
  Receipt Date: 20100106
  Transmission Date: 20100710
  Serious: Yes (Other)
  Sender: FDA-Public Use
  Company Number: US-ELI_LILLY_AND_COMPANY-US201001000731

PATIENT
  Sex: Male

DRUGS (2)
  1. HUMALOG MIX 75/25 [Suspect]
     Indication: DIABETES MELLITUS
     Dosage: 26 U, EACH MORNING
     Dates: start: 20091029
  2. HUMALOG MIX 75/25 [Suspect]
     Dosage: 20 U, EACH EVENING

REACTIONS (3)
  - BLINDNESS [None]
  - DEVICE MISUSE [None]
  - PRODUCT QUALITY ISSUE [None]
